FAERS Safety Report 18767126 (Version 1)
Quarter: 2021Q1

REPORT INFORMATION
  Report Type: Spontaneous
  Country: US (occurrence: US)
  Receive Date: 20210120
  Receipt Date: 20210120
  Transmission Date: 20210419
  Serious: Yes (Other)
  Sender: FDA-Public Use
  Company Number: None

PATIENT
  Age: 54 Year
  Sex: Female
  Weight: 96.75 kg

DRUGS (1)
  1. ALBUTEROL HFA (GENERIC BRAND INHALER) [Suspect]
     Active Substance: ALBUTEROL SULFATE
     Indication: ASTHMA
     Route: 055

REACTIONS (3)
  - Device malfunction [None]
  - Oral mucosal blistering [None]
  - Incorrect dose administered by device [None]
